FAERS Safety Report 25911015 (Version 3)
Quarter: 2025Q4

REPORT INFORMATION
  Report Type: Report from Study
  Country: EU (occurrence: EU)
  Receive Date: 20251013
  Receipt Date: 20251021
  Transmission Date: 20260117
  Serious: Yes (Life-Threatening, Disabling, Other)
  Sender: AUROBINDO
  Company Number: EU-BAUSCH-BH-2025-017673

PATIENT
  Age: 41 Year
  Sex: Female

DRUGS (9)
  1. PREDNISOLONE [Suspect]
     Active Substance: PREDNISOLONE
     Indication: Myasthenia gravis
     Dosage: UNK (5?60 MG/DAY)
     Route: 065
  2. METHOTREXATE [Suspect]
     Active Substance: METHOTREXATE
     Indication: Myasthenia gravis
     Dosage: UNK
     Route: 065
  3. ZILUCOPLAN [Suspect]
     Active Substance: ZILUCOPLAN
     Indication: Myasthenia gravis
     Dosage: UNK
     Route: 065
  4. PYRIDOSTIGMINE [Suspect]
     Active Substance: PYRIDOSTIGMINE
     Indication: Myasthenia gravis
     Dosage: UNK
     Route: 065
  5. HUMAN IMMUNOGLOBULIN G [Suspect]
     Active Substance: HUMAN IMMUNOGLOBULIN G
     Indication: Myasthenia gravis
     Dosage: UNK
     Route: 042
  6. RITUXIMAB [Suspect]
     Active Substance: RITUXIMAB
     Indication: Myasthenia gravis
     Dosage: UNK (3 CYCLES)
     Route: 065
  7. PLASMA PROTEIN FRACTION (HUMAN) [Suspect]
     Active Substance: PLASMA PROTEIN FRACTION (HUMAN)
     Indication: Myasthenia gravis
     Dosage: UNK
     Route: 065
  8. HUMAN IMMUNOGLOBULIN G [Suspect]
     Active Substance: HUMAN IMMUNOGLOBULIN G
     Indication: Myasthenia gravis
     Dosage: UNK
     Route: 065
  9. EFGARTIGIMOD ALFA [Suspect]
     Active Substance: EFGARTIGIMOD ALFA
     Indication: Myasthenia gravis
     Dosage: UNK
     Route: 065

REACTIONS (7)
  - Cytokine release syndrome [Unknown]
  - Myasthenia gravis crisis [Unknown]
  - Therapy non-responder [Unknown]
  - Myasthenia gravis [Unknown]
  - Drug ineffective [Unknown]
  - Tachycardia [Unknown]
  - Diarrhoea [Unknown]
